FAERS Safety Report 15820073 (Version 3)
Quarter: 2019Q2

REPORT INFORMATION
  Report Type: Spontaneous
  Country: US (occurrence: US)
  Receive Date: 20190114
  Receipt Date: 20190520
  Transmission Date: 20190711
  Serious: Yes (Other)
  Sender: FDA-Public Use
  Company Number: US-UCBSA-2018048036

PATIENT
  Sex: Male
  Weight: 79.4 kg

DRUGS (21)
  1. NEUPRO [Suspect]
     Active Substance: ROTIGOTINE
     Indication: PRODUCT USED FOR UNKNOWN INDICATION
     Dosage: 8 MG, ONCE DAILY (QD)
     Route: 062
     Dates: start: 2015
  2. LOSARTAN. [Concomitant]
     Active Substance: LOSARTAN
     Indication: PRODUCT USED FOR UNKNOWN INDICATION
  3. SILDENAFIL. [Concomitant]
     Active Substance: SILDENAFIL
     Indication: PRODUCT USED FOR UNKNOWN INDICATION
  4. RASAGILINE. [Concomitant]
     Active Substance: RASAGILINE
  5. NEUPRO [Suspect]
     Active Substance: ROTIGOTINE
     Dosage: 4 MG, ONCE DAILY (QD)
     Route: 062
  6. GOCOVRI [Suspect]
     Active Substance: AMANTADINE
     Dosage: 137 MG, ONCE DAILY (QD)
     Route: 048
     Dates: start: 201812
  7. AZILECT [Concomitant]
     Active Substance: RASAGILINE MESYLATE
     Indication: PRODUCT USED FOR UNKNOWN INDICATION
  8. VESICARE [Concomitant]
     Active Substance: SOLIFENACIN SUCCINATE
     Indication: PRODUCT USED FOR UNKNOWN INDICATION
  9. GOCOVRI [Suspect]
     Active Substance: AMANTADINE
     Indication: DYSKINESIA
     Dosage: 274 MG, ONCE DAILY (QD)
     Route: 048
     Dates: start: 20171127, end: 2018
  10. GOCOVRI [Suspect]
     Active Substance: AMANTADINE
     Dosage: 68.5 MILLIGRAM, ONCE DAILY (QD)
     Route: 048
     Dates: start: 201812, end: 201812
  11. METFORMIN [Concomitant]
     Active Substance: METFORMIN HYDROCHLORIDE
     Indication: PRODUCT USED FOR UNKNOWN INDICATION
  12. RAPAFLO [Concomitant]
     Active Substance: SILODOSIN
     Indication: PRODUCT USED FOR UNKNOWN INDICATION
  13. RIVASTIGMINE. [Concomitant]
     Active Substance: RIVASTIGMINE
     Indication: PRODUCT USED FOR UNKNOWN INDICATION
  14. CARBIDOPA/LEVODOPA [Concomitant]
     Active Substance: CARBIDOPA\LEVODOPA
     Indication: PRODUCT USED FOR UNKNOWN INDICATION
  15. SILODOSIN. [Concomitant]
     Active Substance: SILODOSIN
  16. BYSTOLIC [Concomitant]
     Active Substance: NEBIVOLOL HYDROCHLORIDE
     Indication: PRODUCT USED FOR UNKNOWN INDICATION
  17. CLOBETASOL [Concomitant]
     Active Substance: CLOBETASOL
     Indication: PRODUCT USED FOR UNKNOWN INDICATION
  18. VITAMIN D3 [Concomitant]
     Active Substance: CHOLECALCIFEROL
     Indication: SUPPLEMENTATION THERAPY
  19. NEXIUM [Concomitant]
     Active Substance: ESOMEPRAZOLE MAGNESIUM
     Indication: GASTROOESOPHAGEAL REFLUX DISEASE
  20. MUPIROCIN. [Concomitant]
     Active Substance: MUPIROCIN
  21. ALPRAZOLAM. [Concomitant]
     Active Substance: ALPRAZOLAM

REACTIONS (14)
  - Hallucination, visual [Not Recovered/Not Resolved]
  - Renal function test abnormal [Unknown]
  - Rash pruritic [Not Recovered/Not Resolved]
  - Gait inability [Unknown]
  - Joint swelling [Recovering/Resolving]
  - Gastrointestinal ulcer [Unknown]
  - Constipation [Not Recovered/Not Resolved]
  - Oedema peripheral [Unknown]
  - Tooth fracture [Unknown]
  - Pruritus [Not Recovered/Not Resolved]
  - Gastrooesophageal reflux disease [Unknown]
  - Exfoliative rash [Recovered/Resolved]
  - Delusion [Unknown]
  - Nightmare [Unknown]

NARRATIVE: CASE EVENT DATE: 2015
